FAERS Safety Report 7530752-3 (Version None)
Quarter: 2011Q2

REPORT INFORMATION
  Report Type: 
  Country: None (occurrence: None)
  Receive Date: 20110607
  Receipt Date: 20110603
  Transmission Date: 20111010
  Serious: Yes (Other)
  Sender: FDA-Public Use
  Company Number: NL-ABBOTT-11P-114-0730221-00

PATIENT
  Sex: Female
  Weight: 75 kg

DRUGS (8)
  1. METHOTREXATE [Concomitant]
     Indication: RHEUMATOID ARTHRITIS
     Route: 048
  2. HUMIRA [Suspect]
     Indication: RHEUMATOID ARTHRITIS
     Route: 058
     Dates: start: 20101112, end: 20110304
  3. FOLIC ACID [Concomitant]
     Indication: VITAMIN SUPPLEMENTATION
     Route: 048
  4. HUMIRA [Suspect]
     Route: 058
     Dates: start: 20110419
  5. PANTOPRAZOL [Concomitant]
     Indication: PROPHYLAXIS
  6. PANTOPRAZOL [Concomitant]
     Indication: GASTRIC DISORDER
     Dosage: EC TABLET; DAILY
     Route: 048
  7. SIMVASTATIN [Concomitant]
     Indication: BLOOD CHOLESTEROL INCREASED
     Dosage: TABLET FO; DAILY
     Route: 048
     Dates: start: 20050101
  8. HYDROCHLOROTHIAZIDE [Concomitant]
     Indication: HYPERTENSION
     Route: 048
     Dates: start: 20100501

REACTIONS (2)
  - PURULENT DISCHARGE [None]
  - GINGIVITIS [None]
